FAERS Safety Report 6069623-0 (Version None)
Quarter: 2009Q1

REPORT INFORMATION
  Report Type: 
  Country: None (occurrence: None)
  Receive Date: 20090209
  Receipt Date: 20090202
  Transmission Date: 20090719
  Serious: Yes (Death, Hospitalization)
  Sender: FDA-Public Use
  Company Number: DE-BRISTOL-MYERS SQUIBB COMPANY-14487060

PATIENT
  Age: 65 Year
  Sex: Male
  Weight: 73 kg

DRUGS (5)
  1. ABATACEPT [Suspect]
     Indication: RHEUMATOID ARTHRITIS
     Route: 042
     Dates: start: 20070910, end: 20080313
  2. METHOTREXATE [Concomitant]
     Indication: RHEUMATOID ARTHRITIS
     Route: 048
     Dates: start: 20001101
  3. PREDNISOLONE [Concomitant]
     Indication: RHEUMATOID ARTHRITIS
     Dosage: SINCE YEARS
     Route: 048
  4. TILIDINE [Concomitant]
     Indication: RHEUMATOID ARTHRITIS
     Dosage: RETARD 2 X 1 ORAL SINCE YEARS
     Route: 048
  5. MARCUMAR [Concomitant]
     Indication: RHEUMATOID ARTHRITIS

REACTIONS (3)
  - PNEUMONIA BACTERIAL [None]
  - RENAL FAILURE [None]
  - SEPTIC SHOCK [None]
